FAERS Safety Report 15203492 (Version 8)
Quarter: 2020Q1

REPORT INFORMATION
  Report Type: Spontaneous
  Country: US (occurrence: US)
  Receive Date: 20180726
  Receipt Date: 20200330
  Transmission Date: 20200409
  Serious: Yes (Hospitalization, Other)
  Sender: FDA-Public Use
  Company Number: US-VIFOR (INTERNATIONAL) INC.-VIT-2018-07381

PATIENT
  Age: 89 Year
  Sex: Male
  Weight: 73.9 kg

DRUGS (21)
  1. VELTASSA [Suspect]
     Active Substance: PATIROMER
     Route: 048
  2. HYDROXYUREA. [Concomitant]
     Active Substance: HYDROXYUREA
  3. ATORVASTATIN CALCIUM. [Concomitant]
     Active Substance: ATORVASTATIN CALCIUM
  4. CALCIUM 500+D [Concomitant]
     Active Substance: CALCIUM\VITAMIN D
  5. NORVASC [Concomitant]
     Active Substance: AMLODIPINE BESYLATE
  6. ASPIRIN LOW DOSE [Concomitant]
     Active Substance: ASPIRIN
  7. VELTASSA [Suspect]
     Active Substance: PATIROMER
     Indication: HYPERKALAEMIA
     Route: 048
     Dates: start: 201609
  8. PENTOXIFYLLINE. [Concomitant]
     Active Substance: PENTOXIFYLLINE
     Indication: PERIPHERAL ARTERIAL OCCLUSIVE DISEASE
  9. LIPITOR [Concomitant]
     Active Substance: ATORVASTATIN CALCIUM
  10. VELTASSA [Suspect]
     Active Substance: PATIROMER
     Route: 048
     Dates: start: 20200219
  11. TURMERIC [Concomitant]
     Active Substance: HERBALS\TURMERIC
  12. PHOSPHOLINE IODIDE [Concomitant]
     Active Substance: ECHOTHIOPHATE IODIDE
  13. CALCIUM [Concomitant]
     Active Substance: CALCIUM
  14. MAGNESIUM CARBONATE [Concomitant]
     Active Substance: MAGNESIUM CARBONATE
  15. FOLIC ACID. [Concomitant]
     Active Substance: FOLIC ACID
  16. VELTASSA [Suspect]
     Active Substance: PATIROMER
     Route: 048
     Dates: start: 2010
  17. VITAMIN D [Concomitant]
     Active Substance: VITAMIN D NOS
  18. CARTEOLOL HCL [Concomitant]
     Active Substance: CARTEOLOL HYDROCHLORIDE
  19. AMLODIPINE BESILATE [Concomitant]
     Active Substance: AMLODIPINE BESYLATE
     Indication: HYPERTENSION
  20. MAGNESIUM [Concomitant]
     Active Substance: MAGNESIUM
  21. VITAMIN D3 [Concomitant]
     Active Substance: CHOLECALCIFEROL

REACTIONS (10)
  - Off label use [Recovered/Resolved]
  - Anaemia [Unknown]
  - Thrombocytosis [Not Recovered/Not Resolved]
  - Glaucoma [Recovered/Resolved]
  - Peripheral arterial occlusive disease [Recovered/Resolved]
  - Eye operation [Unknown]
  - Red blood cell count increased [Recovered/Resolved]
  - Condition aggravated [Recovered/Resolved]
  - Musculoskeletal disorder [Unknown]
  - Muscle spasms [Recovered/Resolved]

NARRATIVE: CASE EVENT DATE: 2017
